FAERS Safety Report 7045648-3 (Version None)
Quarter: 2010Q4

REPORT INFORMATION
  Report Type: 
  Country: None (occurrence: None)
  Receive Date: 20101014
  Receipt Date: 20101006
  Transmission Date: 20110411
  Serious: Yes (Other)
  Sender: FDA-Public Use
  Company Number: US-BAYER-201021453BCC

PATIENT
  Age: 61 Year
  Sex: Male
  Weight: 96 kg

DRUGS (7)
  1. ALEVE (CAPLET) [Suspect]
     Indication: BACK INJURY
     Route: 048
     Dates: start: 19920101, end: 20091101
  2. LORCET-HD [Concomitant]
  3. VANCOMYCIN [Concomitant]
  4. INSULIN [Concomitant]
  5. COUMADIN [Concomitant]
  6. STEROIDS [Concomitant]
  7. KEPPRA [Concomitant]

REACTIONS (1)
  - RENAL FAILURE [None]
